FAERS Safety Report 5564654-9 (Version None)
Quarter: 2007Q4

REPORT INFORMATION
  Report Type: 
  Country: None (occurrence: None)
  Receive Date: 20071218
  Receipt Date: 20071205
  Transmission Date: 20080405
  Serious: Yes (Hospitalization)
  Sender: FDA-Public Use
  Company Number: GB-BAYER-200717756GPV

PATIENT
  Age: 45 Year
  Sex: Female

DRUGS (2)
  1. ASPIRIN [Suspect]
     Indication: VASCULAR OCCLUSION
     Route: 048
  2. CLOPIDOGREL [Suspect]
     Indication: VASCULAR OCCLUSION
     Route: 048

REACTIONS (1)
  - OCULAR RETROBULBAR HAEMORRHAGE [None]
